FAERS Safety Report 7155068-9 (Version None)
Quarter: 2010Q4

REPORT INFORMATION
  Report Type: 
  Country: None (occurrence: None)
  Receive Date: 20101214
  Receipt Date: 20091229
  Transmission Date: 20110411
  Serious: Yes (Hospitalization)
  Sender: FDA-Public Use
  Company Number: US-AMGEN-QUU364533

PATIENT

DRUGS (8)
  1. ETANERCEPT [Suspect]
     Indication: PRODUCT USED FOR UNKNOWN INDICATION
     Dosage: UNK UNK, UNK
     Dates: end: 20090801
  2. METHOTREXATE [Suspect]
  3. PREDNISONE [Suspect]
  4. UNSPECIFIED MEDICATION [Suspect]
     Dosage: UNK UNK, UNK
     Dates: start: 20090301
  5. SILDENAFIL CITRATE [Concomitant]
     Dosage: UNK UNK, UNK
  6. OSCAL [Concomitant]
  7. NAPROXEN [Concomitant]
     Dosage: UNK UNK, UNK
  8. LANSOPRAZOLE [Concomitant]

REACTIONS (1)
  - SUBCUTANEOUS ABSCESS [None]
